FAERS Safety Report 15097207 (Version 4)
Quarter: 2019Q1

REPORT INFORMATION
  Report Type: Report from Study
  Country: CA (occurrence: CA)
  Receive Date: 20180702
  Receipt Date: 20190311
  Transmission Date: 20190417
  Serious: Yes (Other)
  Sender: FDA-Public Use
  Company Number: CA-GLAXOSMITHKLINE-CA2018GSK107905

PATIENT
  Sex: Female

DRUGS (4)
  1. MEPOLIZUMAB [Suspect]
     Active Substance: MEPOLIZUMAB
     Indication: ASTHMA
     Dosage: 100 MG, Z.MONTHLY
     Route: 042
     Dates: start: 20180418
  2. MEPOLIZUMAB [Suspect]
     Active Substance: MEPOLIZUMAB
     Dosage: 100 MG, Z,MONTHLY
     Route: 042
  3. VENTOLIN [Suspect]
     Active Substance: ALBUTEROL SULFATE
     Indication: PRODUCT USED FOR UNKNOWN INDICATION
     Dosage: UNK
     Dates: start: 199901
  4. FLOVENT DISKUS [Suspect]
     Active Substance: FLUTICASONE PROPIONATE
     Indication: PRODUCT USED FOR UNKNOWN INDICATION
     Dosage: UNK

REACTIONS (19)
  - Hypersensitivity [Unknown]
  - Meniere^s disease [Unknown]
  - Hypoaesthesia oral [Unknown]
  - Headache [Not Recovered/Not Resolved]
  - Condition aggravated [Unknown]
  - Dizziness [Unknown]
  - Arthritis [Unknown]
  - Asthma [Unknown]
  - Varicose vein [Unknown]
  - Pain [Unknown]
  - Impaired quality of life [Unknown]
  - Gait disturbance [Unknown]
  - Lip swelling [Unknown]
  - Influenza like illness [Unknown]
  - Asthenia [Unknown]
  - Pneumonia [Unknown]
  - Arthralgia [Unknown]
  - Insomnia [Unknown]
  - Crying [Unknown]
